FAERS Safety Report 16299050 (Version 1)
Quarter: 2019Q2

REPORT INFORMATION
  Report Type: Spontaneous
  Country: US (occurrence: US)
  Receive Date: 20190510
  Receipt Date: 20190510
  Transmission Date: 20190711
  Serious: Yes (Other)
  Sender: FDA-Public Use
  Company Number: US-PURDUE-USA-2019-0147097

PATIENT
  Sex: Female

DRUGS (1)
  1. HYDROCODONE BITARTRATE (SIMILAR TO NDA 206627) [Suspect]
     Active Substance: HYDROCODONE BITARTRATE
     Indication: SPINAL OPERATION
     Route: 048

REACTIONS (4)
  - Road traffic accident [Unknown]
  - Coordination abnormal [Unknown]
  - Impaired driving ability [Unknown]
  - Miosis [Unknown]
